FAERS Safety Report 9260103 (Version 1)
Quarter: 2013Q2

REPORT INFORMATION
  Report Type: Spontaneous
  Country: US (occurrence: US)
  Receive Date: 20130429
  Receipt Date: 20130429
  Transmission Date: 20140414
  Serious: Yes (Other)
  Sender: FDA-Public Use
  Company Number: US-ELI_LILLY_AND_COMPANY-US201304006292

PATIENT
  Age: 67 Year
  Sex: Male
  Weight: 79.37 kg

DRUGS (1)
  1. HUMALOG LISPRO [Suspect]

REACTIONS (3)
  - Blood glucose increased [Recovering/Resolving]
  - Blood ketone body [Unknown]
  - Thirst [Unknown]
